FAERS Safety Report 5124920-8 (Version None)
Quarter: 2006Q4

REPORT INFORMATION
  Report Type: 
  Country: None (occurrence: None)
  Receive Date: 20061011
  Receipt Date: 20051205
  Transmission Date: 20070319
  Serious: Yes (Other)
  Sender: FDA-Public Use
  Company Number: FR-BRISTOL-MYERS SQUIBB COMPANY-13205471

PATIENT
  Age: 58 Year
  Sex: Male

DRUGS (2)
  1. PRAVASTATIN [Suspect]
     Indication: CEREBROVASCULAR ACCIDENT
     Route: 048
  2. ASPEGIC 1000 [Concomitant]

REACTIONS (3)
  - ALANINE AMINOTRANSFERASE INCREASED [None]
  - ASPARTATE AMINOTRANSFERASE INCREASED [None]
  - NERVE ROOT LESION [None]
